FAERS Safety Report 6344359-7 (Version None)
Quarter: 2009Q3

REPORT INFORMATION
  Report Type: 
  Country: None (occurrence: None)
  Receive Date: 20090903
  Receipt Date: 20090824
  Transmission Date: 20100115
  Serious: Yes (Other)
  Sender: FDA-Public Use
  Company Number: CIO09012832

PATIENT
  Sex: Male

DRUGS (5)
  1. VAPORUB, REGULAR SCENT [Suspect]
     Indication: BRONCHITIS
     Dosage: UNK DOSE, UNK FREQ FOR 2 DAYS, INTRANASAL
     Route: 045
     Dates: start: 20090621, end: 20090622
  2. VAPORUB, REGULAR SCENT [Suspect]
     Indication: RESPIRATORY TRACT CONGESTION
     Dosage: UNK DOSE, UNK FREQ FOR 2 DAYS, INTRANASAL
     Route: 045
     Dates: start: 20090621, end: 20090622
  3. SEIZURE MEDICATION [Concomitant]
  4. GUAIFENESIN [Concomitant]
  5. AZITHROMYCIN GENERIC (AZITHROMYCIN) [Concomitant]

REACTIONS (3)
  - CONVULSION [None]
  - EXPIRED DRUG ADMINISTERED [None]
  - INCORRECT ROUTE OF DRUG ADMINISTRATION [None]
